FAERS Safety Report 13579952 (Version 1)
Quarter: 2017Q2

REPORT INFORMATION
  Report Type: Spontaneous
  Country: DE (occurrence: DE)
  Receive Date: 20170525
  Receipt Date: 20170525
  Transmission Date: 20170830
  Serious: Yes (Hospitalization)
  Sender: FDA-Public Use
  Company Number: DE-TORRENT-00006536

PATIENT
  Age: 29 Year
  Sex: Female

DRUGS (1)
  1. LEVOFLOXACIN HEUMANN 500 MG [Suspect]
     Active Substance: LEVOFLOXACIN

REACTIONS (7)
  - Heart rate increased [Recovered/Resolved]
  - Anxiety [Recovering/Resolving]
  - Vertigo [Recovered/Resolved]
  - Vomiting [Recovered/Resolved]
  - Diarrhoea [Recovered/Resolved]
  - Tremor [Recovered/Resolved]
  - Dizziness [Recovering/Resolving]
